FAERS Safety Report 15923307 (Version 1)
Quarter: 2019Q1

REPORT INFORMATION
  Report Type: Spontaneous
  Country: US (occurrence: US)
  Receive Date: 20190206
  Receipt Date: 20190206
  Transmission Date: 20190417
  Serious: Yes (Other)
  Sender: FDA-Public Use
  Company Number: None

PATIENT
  Age: 52 Year
  Sex: Female
  Weight: 91.8 kg

DRUGS (7)
  1. HCTZ [Concomitant]
     Active Substance: HYDROCHLOROTHIAZIDE
  2. BENICAR [Concomitant]
     Active Substance: OLMESARTAN MEDOXOMIL
  3. PREVACID (OTC) [Concomitant]
  4. ELETRIPTAN HYDROBROMIDE TABLETS 40 MG 1 CARD X 6 TABLETS [Suspect]
     Active Substance: ELETRIPTAN HYDROBROMIDE
     Indication: MIGRAINE
     Dosage: 1 TABLET(S);OTHER ROUTE:1 TAB PRN, REPEAT WITH 2ND TAB IN 2 HRS?
     Dates: start: 20190202, end: 20190202
  5. ENTERIC ASPIRIN [Concomitant]
     Active Substance: ASPIRIN
  6. WELLBUTRIN [Concomitant]
     Active Substance: BUPROPION HYDROCHLORIDE
  7. MULTIVITAMIN [Concomitant]
     Active Substance: VITAMINS

REACTIONS (9)
  - Product use complaint [None]
  - Dizziness [None]
  - Photosensitivity reaction [None]
  - Vision blurred [None]
  - Drug ineffective [None]
  - Nausea [None]
  - Pain [None]
  - Somnolence [None]
  - Product substitution issue [None]

NARRATIVE: CASE EVENT DATE: 20190202
